FAERS Safety Report 5471003-3 (Version None)
Quarter: 2007Q3

REPORT INFORMATION
  Report Type: 
  Country: None (occurrence: None)
  Receive Date: 20070928
  Receipt Date: 20070925
  Transmission Date: 20080115
  Serious: Yes (Other)
  Sender: FDA-Public Use
  Company Number: B0386380A

PATIENT
  Age: 27 Year
  Sex: Female

DRUGS (13)
  1. PAXIL [Suspect]
     Indication: DEPRESSION
     Dosage: 10MG TWICE PER DAY
     Route: 048
     Dates: start: 20041122
  2. ASCORBIC ACID [Suspect]
     Route: 048
  3. CLEAMINE [Concomitant]
     Route: 048
  4. MENBIT [Concomitant]
     Route: 048
  5. HALRACK [Concomitant]
     Route: 048
  6. ETICALM [Concomitant]
     Route: 048
  7. BUSFOLIRON [Concomitant]
     Route: 048
  8. GUANETHIDINE SULFATE [Concomitant]
     Route: 048
  9. ALOSENN [Concomitant]
     Route: 048
  10. CHINESE MEDICATION [Concomitant]
     Route: 065
  11. ZESTROMIN [Concomitant]
     Route: 048
  12. NORMALIN [Concomitant]
     Route: 048
  13. UNKNOWN MEDICATION [Concomitant]
     Route: 065

REACTIONS (2)
  - ABDOMINAL PAIN [None]
  - MELAENA [None]
